FAERS Safety Report 9162992 (Version 1)
Quarter: 2013Q1

REPORT INFORMATION
  Report Type: Spontaneous
  Country: US (occurrence: US)
  Receive Date: 20130314
  Receipt Date: 20130314
  Transmission Date: 20140127
  Serious: No
  Sender: FDA-Public Use
  Company Number: US-009507513-1303USA003067

PATIENT
  Sex: Male

DRUGS (9)
  1. VICTRELIS [Suspect]
     Indication: HEPATITIS C
     Dosage: 800 MG, TID
     Route: 048
     Dates: start: 2012
  2. PEGASYS [Suspect]
     Dosage: UNK
  3. RIBASPHERE [Suspect]
     Dosage: UNK
  4. XANAX [Concomitant]
  5. METOPROLOL [Concomitant]
  6. GABAPENTIN [Concomitant]
  7. DOXAZOSIN MESYLATE [Concomitant]
  8. SPIRONOLACTONE [Concomitant]
  9. ACIPHEX [Concomitant]

REACTIONS (2)
  - Oropharyngeal pain [Unknown]
  - Fatigue [Unknown]
